FAERS Safety Report 7776320-X (Version None)
Quarter: 2011Q3

REPORT INFORMATION
  Report Type: 
  Country: None (occurrence: None)
  Receive Date: 20110926
  Receipt Date: 20110914
  Transmission Date: 20111222
  Serious: Yes (Hospitalization, Other)
  Sender: FDA-Public Use
  Company Number: ES-JNJFOC-NSADSS2001027209

PATIENT
  Age: 81 Year
  Sex: Female
  Weight: 65 kg

DRUGS (5)
  1. INFLIXIMAB [Suspect]
     Indication: RHEUMATOID ARTHRITIS
     Route: 042
     Dates: start: 20001212, end: 20010209
  2. METHOTREXATE [Concomitant]
  3. ACFOL [Concomitant]
  4. CORTICOSTEROID [Concomitant]
  5. CALCIUM/VITAMIN D [Concomitant]

REACTIONS (1)
  - PULMONARY TUBERCULOSIS [None]
